FAERS Safety Report 23742235 (Version 1)
Quarter: 2024Q2

REPORT INFORMATION
  Report Type: Spontaneous
  Country: CN (occurrence: CN)
  Receive Date: 20240415
  Receipt Date: 20240415
  Transmission Date: 20240715
  Serious: Yes (Death, Life-Threatening, Hospitalization, Other)
  Sender: FDA-Public Use
  Company Number: CN-PFIZER INC-202400084871

PATIENT
  Age: 49 Year
  Sex: Male

DRUGS (13)
  1. METHYLPREDNISOLONE SODIUM SUCCINATE [Suspect]
     Active Substance: METHYLPREDNISOLONE SODIUM SUCCINATE
     Indication: Fungal infection
     Dosage: 40 MG, 1X/DAY
  2. METHYLPREDNISOLONE SODIUM SUCCINATE [Suspect]
     Active Substance: METHYLPREDNISOLONE SODIUM SUCCINATE
     Dosage: 40 MG, 2X/DAY
  3. CEFOPERAZONE\TAZOBACTAM SODIUM [Suspect]
     Active Substance: CEFOPERAZONE\TAZOBACTAM SODIUM
     Indication: Fungal infection
     Dosage: 4 G, Q12H
  4. MICAFUNGIN SODIUM [Suspect]
     Active Substance: MICAFUNGIN SODIUM
     Indication: Fungal infection
     Dosage: 100 MG, 1X/DAY
  5. GANCICLOVIR [Suspect]
     Active Substance: GANCICLOVIR
     Indication: Fungal infection
     Dosage: 75 MG, 1X/DAY
  6. THYMOPENTIN [Suspect]
     Active Substance: THYMOPENTIN
     Indication: Immunoglobulin therapy
     Dosage: UNK
  7. CLINDAMYCIN [Suspect]
     Active Substance: CLINDAMYCIN
     Indication: Fungal infection
     Dosage: 1 G, Q12H
  8. CASPOFUNGIN [Suspect]
     Active Substance: CASPOFUNGIN
     Indication: Fungal infection
     Dosage: 50 MG, 1X/DAY
  9. CASPOFUNGIN [Suspect]
     Active Substance: CASPOFUNGIN
     Dosage: 70 MG, 1X/DAY
  10. SULFAMETHOXAZOLE [Suspect]
     Active Substance: SULFAMETHOXAZOLE
     Indication: Fungal infection
     Dosage: 1 G, Q12H
  11. SULFAMETHOXAZOLE [Suspect]
     Active Substance: SULFAMETHOXAZOLE
     Dosage: 2 G, 3X/DAY
  12. IMIPENEM [Suspect]
     Active Substance: IMIPENEM
     Indication: Fungal infection
     Dosage: 500 MG, Q6H
  13. IMMUNE GLOBULIN NOS [Suspect]
     Active Substance: IMMUNE GLOBULIN NOS
     Indication: Fungal infection
     Dosage: INFUSION

REACTIONS (2)
  - Drug ineffective for unapproved indication [Fatal]
  - Off label use [Unknown]
